FAERS Safety Report 18822325 (Version 1)
Quarter: 2021Q1

REPORT INFORMATION
  Report Type: Spontaneous
  Country: US (occurrence: US)
  Receive Date: 20210202
  Receipt Date: 20210202
  Transmission Date: 20210419
  Serious: Yes (Hospitalization)
  Sender: FDA-Public Use
  Company Number: None

PATIENT
  Sex: Male

DRUGS (14)
  1. GABAPENTIN. [Concomitant]
     Active Substance: GABAPENTIN
  2. URSODIOL. [Concomitant]
     Active Substance: URSODIOL
  3. TACROLIMUS. [Suspect]
     Active Substance: TACROLIMUS
     Indication: RENAL TRANSPLANT
     Route: 048
     Dates: start: 20150908
  4. FAMOTIDINE. [Concomitant]
     Active Substance: FAMOTIDINE
  5. CALCITROL [Concomitant]
  6. MYCOPHENOLATE [Concomitant]
     Active Substance: MYCOPHENOLIC ACID
  7. ASPIRIN. [Concomitant]
     Active Substance: ASPIRIN
  8. RIBAVIRIN. [Concomitant]
     Active Substance: RIBAVIRIN
  9. LEVEMIR [Concomitant]
     Active Substance: INSULIN DETEMIR
  10. PREDNISONE. [Concomitant]
     Active Substance: PREDNISONE
  11. OMEPRAZOLE. [Concomitant]
     Active Substance: OMEPRAZOLE
  12. TRAMADOL. [Concomitant]
     Active Substance: TRAMADOL
  13. SIMVASTATIN. [Concomitant]
     Active Substance: SIMVASTATIN
  14. SIMVASTATIN. [Concomitant]
     Active Substance: SIMVASTATIN

REACTIONS (3)
  - Headache [None]
  - Pneumonia [None]
  - Therapy interrupted [None]
